FAERS Safety Report 5781470-3 (Version None)
Quarter: 2008Q2

REPORT INFORMATION
  Report Type: 
  Country: None (occurrence: None)
  Receive Date: 20080623
  Receipt Date: 20080613
  Transmission Date: 20081010
  Serious: Yes (Hospitalization)
  Sender: FDA-Public Use
  Company Number: DE-WYE-H04515008

PATIENT
  Sex: Male

DRUGS (2)
  1. PANTOPRAZOLE SODIUM [Suspect]
     Indication: GASTROOESOPHAGEAL REFLUX DISEASE
     Dosage: 40 MG (FREQUENCY UNSPECIFIED)
     Dates: start: 20020101
  2. ALLOPURINOL [Concomitant]
     Dosage: 150 MG (FREQUENCY UNSPECIFIED)

REACTIONS (2)
  - CSF PROTEIN INCREASED [None]
  - NEUROPATHY PERIPHERAL [None]
